FAERS Safety Report 14362333 (Version 1)
Quarter: 2018Q1

REPORT INFORMATION
  Report Type: Spontaneous
  Country: IT (occurrence: IT)
  Receive Date: 20180108
  Receipt Date: 20180108
  Transmission Date: 20180509
  Serious: Yes (Other)
  Sender: FDA-Public Use
  Company Number: IT-CIPLA LTD.-2017IT30563

PATIENT

DRUGS (2)
  1. ESCITALOPRAM [Suspect]
     Active Substance: ESCITALOPRAM OXALATE
     Indication: BIPOLAR II DISORDER
     Dosage: 10 MG, UNK
     Route: 048
     Dates: start: 20171111, end: 20171201
  2. ABILIFY [Concomitant]
     Active Substance: ARIPIPRAZOLE
     Dosage: 10 MG, UNK
     Route: 048

REACTIONS (1)
  - Atrioventricular block first degree [Unknown]

NARRATIVE: CASE EVENT DATE: 20171129
